FAERS Safety Report 13129167 (Version 3)
Quarter: 2017Q2

REPORT INFORMATION
  Report Type: Spontaneous
  Country: PL (occurrence: PL)
  Receive Date: 20170119
  Receipt Date: 20170629
  Transmission Date: 20170830
  Serious: Yes (Hospitalization, Congenital Anomaly, Other)
  Sender: FDA-Public Use
  Company Number: PL-SUN PHARMACEUTICAL INDUSTRIES LTD-2017R1-131645

PATIENT
  Sex: Male

DRUGS (1)
  1. PROPYLTHIOURACIL. [Suspect]
     Active Substance: PROPYLTHIOURACIL
     Indication: HYPERTHYROIDISM
     Dosage: 50 MG, BID
     Route: 064

REACTIONS (4)
  - Jaundice [Recovering/Resolving]
  - Hypothyroidism [Recovering/Resolving]
  - Foetal exposure during pregnancy [Recovering/Resolving]
  - Goitre congenital [Recovering/Resolving]
